FAERS Safety Report 21730523 (Version 1)
Quarter: 2022Q4

REPORT INFORMATION
  Report Type: Spontaneous
  Country: US (occurrence: US)
  Receive Date: 20221215
  Receipt Date: 20221215
  Transmission Date: 20230113
  Serious: No
  Sender: FDA-Public Use
  Company Number: US-ENDO PHARMACEUTICALS INC-2022-002392

PATIENT
  Sex: Male

DRUGS (2)
  1. TESTIM [Suspect]
     Active Substance: TESTOSTERONE
     Indication: Blood testosterone abnormal
     Dosage: 2 DF, DAILY (TWO TUBES)
     Route: 065
  2. TESTIM [Suspect]
     Active Substance: TESTOSTERONE
     Dosage: 1 DF, DAILY (REPORTED AS USED FOR OVER 10 YEARS) (ONE TUBE)
     Route: 065

REACTIONS (2)
  - Euphoric mood [Unknown]
  - Acne [Unknown]
